FAERS Safety Report 4660253-1 (Version None)
Quarter: 2005Q2

REPORT INFORMATION
  Report Type: 
  Country: None (occurrence: None)
  Receive Date: 20050505
  Receipt Date: 20050116
  Transmission Date: 20051028
  Serious: No
  Sender: FDA-Public Use
  Company Number: 2005USFACT00224

PATIENT
  Age: 50 Year
  Sex: Female

DRUGS (2)
  1. . [Concomitant]
  2. FACTIVE [Suspect]
     Indication: RESPIRATORY TRACT INFECTION BACTERIAL
     Dosage: 320 MG QD ORAL
     Route: 048
     Dates: start: 20041109, end: 20041115

REACTIONS (1)
  - RASH GENERALISED [None]
